FAERS Safety Report 6710325-2 (Version None)
Quarter: 2010Q2

REPORT INFORMATION
  Report Type: 
  Country: None (occurrence: None)
  Receive Date: 20100504
  Receipt Date: 20100419
  Transmission Date: 20101027
  Serious: Yes (Hospitalization)
  Sender: FDA-Public Use
  Company Number: PHHY2010GB26403

PATIENT
  Sex: Female

DRUGS (1)
  1. DESERIL [Suspect]
     Indication: HEADACHE
     Dosage: 2 MG, TID
     Route: 048
     Dates: start: 20090601

REACTIONS (3)
  - ABDOMINAL PAIN [None]
  - GASTROINTESTINAL ISCHAEMIA [None]
  - GASTROINTESTINAL SURGERY [None]
